FAERS Safety Report 9729724 (Version 1)
Quarter: 2013Q4

REPORT INFORMATION
  Report Type: Spontaneous
  Country: US (occurrence: US)
  Receive Date: 20131204
  Receipt Date: 20131204
  Transmission Date: 20140711
  Serious: No
  Sender: FDA-Public Use
  Company Number: US-GILEAD-2009-0021778

PATIENT
  Age: 68 Year
  Sex: Female
  Weight: 120.9 kg

DRUGS (7)
  1. LETAIRIS [Suspect]
     Indication: PULMONARY ARTERIAL HYPERTENSION
     Route: 048
     Dates: start: 20090430, end: 20090504
  2. COUMADIN [Concomitant]
  3. LASIX [Concomitant]
  4. METOLAZONE [Concomitant]
  5. DIOVAN [Concomitant]
  6. BISOPRL/HCTZ [Concomitant]
  7. CALCIUM TAB + D [Concomitant]

REACTIONS (2)
  - Feeling abnormal [Unknown]
  - Dyspnoea [Unknown]
